FAERS Safety Report 9268801 (Version 1)
Quarter: 2013Q2

REPORT INFORMATION
  Report Type: Spontaneous
  Country: US (occurrence: US)
  Receive Date: 20130502
  Receipt Date: 20130502
  Transmission Date: 20140414
  Serious: No
  Sender: FDA-Public Use
  Company Number: US-TEVA-400982USA

PATIENT
  Age: 68 Year
  Sex: Male
  Weight: 79 kg

DRUGS (6)
  1. COPAXONE [Suspect]
     Indication: MULTIPLE SCLEROSIS
     Dates: start: 2004
  2. GABAPENTIN [Concomitant]
     Indication: NEURALGIA
  3. MODAFINIL [Concomitant]
     Indication: MULTIPLE SCLEROSIS
  4. FEXOFENADINE [Concomitant]
     Indication: GASTROOESOPHAGEAL REFLUX DISEASE
  5. SIMVASTATIN [Concomitant]
     Indication: BLOOD CHOLESTEROL INCREASED
  6. TRAVOPROST [Concomitant]
     Indication: GLAUCOMA

REACTIONS (1)
  - Herpes zoster [Not Recovered/Not Resolved]
